FAERS Safety Report 4550721-5 (Version None)
Quarter: 2004Q4

REPORT INFORMATION
  Report Type: 
  Country: None (occurrence: None)
  Receive Date: 20041217
  Receipt Date: 20040916
  Transmission Date: 20050328
  Serious: No
  Sender: FDA-Public Use
  Company Number: 2004-BP-08316BP

PATIENT
  Age: 82 Year
  Sex: Female

DRUGS (8)
  1. SPIRIVA [Suspect]
     Indication: CHRONIC OBSTRUCTIVE AIRWAYS DISEASE
     Dosage: 18 MCG (18 MCG, ONCE DAILY), IH
     Route: 055
     Dates: start: 20040608
  2. MYCELEX [Concomitant]
  3. ALBUTEROL [Concomitant]
  4. DIAZIDE (GLICLAZIDE) [Concomitant]
  5. SYNTHROID [Concomitant]
  6. OXYGEN (OXYGEN) [Concomitant]
  7. VASOTEC [Concomitant]
  8. RHINOCORT NASAL [Concomitant]

REACTIONS (4)
  - DYSPNOEA [None]
  - GLOSSITIS [None]
  - TONGUE DISCOLOURATION [None]
  - TONGUE DISORDER [None]
